FAERS Safety Report 4434128-7 (Version None)
Quarter: 2004Q3

REPORT INFORMATION
  Report Type: 
  Country: None (occurrence: None)
  Receive Date: 20040825
  Receipt Date: 20040810
  Transmission Date: 20050211
  Serious: Yes (Hospitalization)
  Sender: FDA-Public Use
  Company Number: 208327

PATIENT
  Age: 56 Year
  Sex: Male
  Weight: 77 kg

DRUGS (6)
  1. RITUXIMAB (RITUXIMAB) CONC FOR SOLUTION FOR INFUSION [Suspect]
     Indication: NON-HODGKIN'S LYMPHOMA
     Dosage: SEE IMAGE
     Route: 042
     Dates: start: 20040224, end: 20040614
  2. RITUXIMAB (RITUXIMAB) CONC FOR SOLUTION FOR INFUSION [Suspect]
     Indication: NON-HODGKIN'S LYMPHOMA
     Dosage: SEE IMAGE
     Route: 042
     Dates: start: 20030701
  3. CLADRIBINE [Suspect]
     Indication: NON-HODGKIN'S LYMPHOMA
     Dosage: 7.3 MG, INTRAVENOUS
     Route: 042
     Dates: start: 20040226, end: 20040616
  4. MITOXANTRONE [Concomitant]
  5. CHLORPHENIRAMINE MALEATE [Concomitant]
  6. LENOGRASTIM [Concomitant]

REACTIONS (3)
  - CD4 LYMPHOCYTES DECREASED [None]
  - CYTOMEGALOVIRUS ANTIGEN POSITIVE [None]
  - PNEUMONIA CYTOMEGALOVIRAL [None]
